FAERS Safety Report 26147644 (Version 1)
Quarter: 2025Q4

REPORT INFORMATION
  Report Type: Spontaneous
  Country: CN (occurrence: CN)
  Receive Date: 20251211
  Receipt Date: 20251211
  Transmission Date: 20260117
  Serious: Yes (Hospitalization)
  Sender: BAXTER
  Company Number: None

PATIENT
  Age: 42 Year
  Weight: 70 kg

DRUGS (4)
  1. CYCLOPHOSPHAMIDE [Suspect]
     Active Substance: CYCLOPHOSPHAMIDE
     Indication: Neoplasm
     Dosage: 0.83 G, QD
     Route: 041
     Dates: start: 20251121, end: 20251121
  2. DOCETAXEL [Suspect]
     Active Substance: DOCETAXEL
     Indication: Neoplasm
     Dosage: 100 MG, QD
     Route: 041
     Dates: start: 20251121, end: 20251121
  3. SODIUM CHLORIDE [Suspect]
     Active Substance: SODIUM CHLORIDE
     Indication: Medication dilution
     Dosage: 250 ML, QD WITH DOCETAXEL
     Route: 041
     Dates: start: 20251121, end: 20251121
  4. SODIUM CHLORIDE [Suspect]
     Active Substance: SODIUM CHLORIDE
     Dosage: 100 ML, QD WITH CYCLOPHOSPHAMIDE
     Route: 041
     Dates: start: 20251121, end: 20251121

REACTIONS (12)
  - Drug eruption [Recovering/Resolving]
  - Erythema multiforme [Recovering/Resolving]
  - Erythema [Not Recovered/Not Resolved]
  - Erythema annulare [Not Recovered/Not Resolved]
  - Pruritus [Recovering/Resolving]
  - Rash [Recovering/Resolving]
  - Joint swelling [Recovering/Resolving]
  - Pain [Unknown]
  - Dyspnoea [Recovering/Resolving]
  - Dysphagia [Unknown]
  - Chest pain [Unknown]
  - Abdominal pain [Recovering/Resolving]

NARRATIVE: CASE EVENT DATE: 20251129
